FAERS Safety Report 5444128-6 (Version None)
Quarter: 2007Q3

REPORT INFORMATION
  Report Type: 
  Country: None (occurrence: None)
  Receive Date: 20070831
  Receipt Date: 20070822
  Transmission Date: 20080115
  Serious: Yes (Hospitalization)
  Sender: FDA-Public Use
  Company Number: 2007-163261-NL

PATIENT
  Age: 67 Year
  Sex: Male

DRUGS (1)
  1. VECURONIUM BROMIDE [Suspect]
     Dates: start: 20070817, end: 20070817

REACTIONS (3)
  - HICCUPS [None]
  - OESOPHAGEAL ACHALASIA [None]
  - VOMITING [None]
